FAERS Safety Report 6628115-8 (Version None)
Quarter: 2010Q1

REPORT INFORMATION
  Report Type: 
  Country: None (occurrence: None)
  Receive Date: 20100308
  Receipt Date: 20100225
  Transmission Date: 20100710
  Serious: No
  Sender: FDA-Public Use
  Company Number: 2010020106

PATIENT
  Sex: Male

DRUGS (2)
  1. ONSOLIS [Suspect]
     Dosage: BU
     Route: 002
  2. VICODIN [Concomitant]

REACTIONS (1)
  - INTERCEPTED MEDICATION ERROR [None]
